FAERS Safety Report 8190175-3 (Version None)
Quarter: 2012Q1

REPORT INFORMATION
  Report Type: 
  Country: None (occurrence: None)
  Receive Date: 20120305
  Receipt Date: 20120218
  Transmission Date: 20120608
  Serious: Yes (Hospitalization, Other)
  Sender: FDA-Public Use
  Company Number: JPI-P-019948

PATIENT
  Age: 57 Year
  Sex: Female

DRUGS (2)
  1. XYREM [Suspect]
     Indication: NARCOLEPSY
     Dosage: 14.5 GM (2.25 GM,2 IN 1 D),ORAL , 6 GM (3 GM,2 IN 1 D),ORAL
     Route: 048
     Dates: start: 20081010
  2. XYREM [Suspect]
     Indication: NARCOLEPSY
     Dosage: 14.5 GM (2.25 GM,2 IN 1 D),ORAL , 6 GM (3 GM,2 IN 1 D),ORAL
     Route: 048
     Dates: start: 20090604

REACTIONS (5)
  - RENAL CANCER [None]
  - FALL [None]
  - DRUG DOSE OMISSION [None]
  - DIZZINESS [None]
  - CYST [None]
